FAERS Safety Report 7491842-7 (Version None)
Quarter: 2011Q2

REPORT INFORMATION
  Report Type: 
  Country: None (occurrence: None)
  Receive Date: 20110519
  Receipt Date: 20110516
  Transmission Date: 20111010
  Serious: Yes (Life-Threatening)
  Sender: FDA-Public Use
  Company Number: FR-BRISTOL-MYERS SQUIBB COMPANY-15750615

PATIENT
  Age: 68 Year
  Sex: Female

DRUGS (2)
  1. ALDACTONE [Suspect]
     Dosage: 1DF:ONE SCORED FILM-COATED TABLET  ALDACTONE 50 MG (SPIRONOLACTONE) ONE SCORED FILM-COATED TABLET
     Route: 048
  2. IRBESARTAN [Suspect]
     Indication: HYPERTENSION
     Dosage: APROVEL 75 MG ON A DAY WAS REINTRODUCED AND THEN DOSE INCREASED TO 150 MG ONCE A DAY
     Route: 048
     Dates: start: 20090101, end: 20110424

REACTIONS (2)
  - HYPERKALAEMIA [None]
  - CARDIAC ARREST [None]
